FAERS Safety Report 8422950-1 (Version None)
Quarter: 2012Q2

REPORT INFORMATION
  Report Type: 
  Country: None (occurrence: None)
  Receive Date: 20120608
  Receipt Date: 20120604
  Transmission Date: 20120825
  Serious: Yes (Other)
  Sender: FDA-Public Use
  Company Number: CN-GLAXOSMITHKLINE-B0804539A

PATIENT
  Age: 32 Year
  Sex: Female
  Weight: 60 kg

DRUGS (3)
  1. ALBUTEROL [Suspect]
     Indication: TRACHEITIS
     Route: 055
     Dates: start: 20100918
  2. AMBROXOL HYDROCHLORIDE [Concomitant]
     Route: 065
     Dates: start: 20100915
  3. CEFUROXIME [Concomitant]
     Route: 065
     Dates: start: 20100915

REACTIONS (12)
  - NAUSEA [None]
  - FLUSHING [None]
  - PERIPHERAL COLDNESS [None]
  - DYSPHONIA [None]
  - CHEST DISCOMFORT [None]
  - DIZZINESS [None]
  - HYPERSENSITIVITY [None]
  - HEADACHE [None]
  - DYSPNOEA [None]
  - PALPITATIONS [None]
  - HYPOAESTHESIA [None]
  - CONVULSION [None]
